FAERS Safety Report 8473522-4 (Version None)
Quarter: 2012Q2

REPORT INFORMATION
  Report Type: 
  Country: None (occurrence: None)
  Receive Date: 20120625
  Receipt Date: 20120625
  Transmission Date: 20120825
  Serious: Yes (Hospitalization)
  Sender: FDA-Public Use
  Company Number: None

PATIENT
  Age: 49 Year
  Sex: Male
  Weight: 85 kg

DRUGS (1)
  1. ETANERCEPT [Suspect]

REACTIONS (3)
  - PSORIASIS [None]
  - CONDITION AGGRAVATED [None]
  - DRUG INEFFECTIVE [None]
